FAERS Safety Report 12576223 (Version 1)
Quarter: 2016Q3

REPORT INFORMATION
  Report Type: Spontaneous
  Country: FR (occurrence: FR)
  Receive Date: 20160720
  Receipt Date: 20160720
  Transmission Date: 20161109
  Serious: Yes (Hospitalization)
  Sender: FDA-Public Use
  Company Number: FR-PFIZER INC-2016349689

PATIENT
  Age: 76 Year
  Sex: Female

DRUGS (9)
  1. OGASTORO [Concomitant]
     Active Substance: LANSOPRAZOLE
     Dosage: 30 MG, UNK
     Route: 065
  2. DOLIPRANE [Concomitant]
     Active Substance: ACETAMINOPHEN
     Dosage: UNK
     Route: 065
  3. TEMERIT [Concomitant]
     Active Substance: NEBIVOLOL
     Dosage: 5 MG, UNK
     Route: 065
  4. IMETH [Suspect]
     Active Substance: METHOTREXATE SODIUM
     Indication: RHEUMATOID ARTHRITIS
     Dosage: 15 MG, WEEKLY
     Route: 048
     Dates: end: 20160704
  5. PLENDIL [Concomitant]
     Active Substance: FELODIPINE
     Dosage: 5 MG, UNK
     Route: 065
  6. REMICADE [Suspect]
     Active Substance: INFLIXIMAB
     Indication: RHEUMATOID ARTHRITIS
     Dosage: 100 MG, POWDER FOR CONCENTRATE FOR SOLUTION FOR INFUSION ;5 MG/KG, EVERY 8 WEEKS
     Route: 042
     Dates: start: 2010, end: 20160418
  7. ACTONEL [Concomitant]
     Active Substance: RISEDRONATE SODIUM
     Dosage: 75 MG, UNK
     Route: 065
  8. SPECIAFOLDINE [Concomitant]
     Active Substance: FOLIC ACID
     Dosage: 5 MG, UNK
     Route: 065
  9. SPIFEN [Concomitant]
     Active Substance: IBUPROFEN
     Dosage: UNK
     Route: 065

REACTIONS (3)
  - Pulmonary tuberculosis [Recovering/Resolving]
  - Pneumonia [Unknown]
  - Thrombocytopenia [Unknown]

NARRATIVE: CASE EVENT DATE: 2016
